FAERS Safety Report 19769543 (Version 1)
Quarter: 2021Q3

REPORT INFORMATION
  Report Type: Spontaneous
  Country: CA (occurrence: CA)
  Receive Date: 20210831
  Receipt Date: 20210831
  Transmission Date: 20211014
  Serious: Yes (Other)
  Sender: FDA-Public Use
  Company Number: CA-ORGANON-2012CAN010289

PATIENT
  Age: 22 Year
  Sex: Female
  Weight: 79 kg

DRUGS (4)
  1. PARACETAMOL [Concomitant]
     Active Substance: ACETAMINOPHEN
     Indication: MIGRAINE
     Dosage: UNK
     Route: 065
     Dates: start: 2015
  2. SALBUTAMOL [Concomitant]
     Active Substance: ALBUTEROL
     Indication: ASTHMA
     Dosage: UNK
     Route: 065
     Dates: start: 1998
  3. PARACETAMOL [Concomitant]
     Active Substance: ACETAMINOPHEN
     Indication: HEADACHE
  4. NUVARING [Suspect]
     Active Substance: ETHINYL ESTRADIOL\ETONOGESTREL
     Indication: CONTRACEPTION
     Dosage: REMAINED IN PLACE CONTINUOUSLY FOR THREE WEEKS AND REMOVED FOR A ONE?WEEK BREAK
     Route: 067
     Dates: start: 2017, end: 20201119

REACTIONS (7)
  - Pregnancy with contraceptive device [Recovered/Resolved]
  - Withdrawal bleed [Unknown]
  - Dermatitis atopic [Unknown]
  - Unintended pregnancy [Recovered/Resolved]
  - Drug ineffective [Unknown]
  - Pain in extremity [Unknown]
  - Alopecia areata [Unknown]

NARRATIVE: CASE EVENT DATE: 2018
